FAERS Safety Report 9850284 (Version 1)
Quarter: 2014Q1

REPORT INFORMATION
  Report Type: Spontaneous
  Country: FR (occurrence: FR)
  Receive Date: 20140128
  Receipt Date: 20140128
  Transmission Date: 20141002
  Serious: Yes (Hospitalization)
  Sender: FDA-Public Use
  Company Number: FR-GLAXOSMITHKLINE-B0962548A

PATIENT
  Age: 72 Year
  Sex: Male

DRUGS (6)
  1. CLAMOXYL [Suspect]
     Indication: INFLAMMATION
     Dosage: 1G THREE TIMES PER DAY
     Route: 048
     Dates: start: 20131130, end: 20131206
  2. ARIXTRA [Suspect]
     Indication: INFLAMMATION
     Dosage: 7.5MG PER DAY
     Route: 058
     Dates: start: 20131130, end: 20131206
  3. FLUDEX [Concomitant]
     Route: 048
  4. ATENOLOL [Concomitant]
  5. LERCAN [Concomitant]
  6. TAHOR [Concomitant]

REACTIONS (1)
  - Acute generalised exanthematous pustulosis [Recovering/Resolving]
